FAERS Safety Report 5963943-3 (Version None)
Quarter: 2008Q4

REPORT INFORMATION
  Report Type: 
  Country: None (occurrence: None)
  Receive Date: 20081124
  Receipt Date: 20081113
  Transmission Date: 20090506
  Serious: Yes (Hospitalization)
  Sender: FDA-Public Use
  Company Number: US-CELGENEUS-163-21880-08110803

PATIENT
  Sex: Female

DRUGS (2)
  1. REVLIMID [Suspect]
     Indication: MULTIPLE MYELOMA
     Route: 048
     Dates: start: 20081017, end: 20081022
  2. REVLIMID [Suspect]
     Route: 048
     Dates: start: 20081114

REACTIONS (4)
  - EYE PRURITUS [None]
  - EYE SWELLING [None]
  - PYREXIA [None]
  - RASH [None]
